FAERS Safety Report 6240837-X (Version None)
Quarter: 2009Q2

REPORT INFORMATION
  Report Type: 
  Country: None (occurrence: None)
  Receive Date: 20090623
  Receipt Date: 20090615
  Transmission Date: 20091009
  Serious: Yes (Death, Hospitalization)
  Sender: FDA-Public Use
  Company Number: ES-ELI_LILLY_AND_COMPANY-ES200906003829

PATIENT
  Age: 78 Year
  Sex: Female

DRUGS (6)
  1. FORTEO [Suspect]
     Indication: OSTEOPOROSIS
     Dosage: 20 UG, UNKNOWN
     Route: 058
     Dates: start: 20090101
  2. CALCITONIN [Concomitant]
     Dosage: UNK, UNKNOWN
     Route: 065
  3. SINTROM [Concomitant]
     Dosage: UNK, UNKNOWN
     Route: 065
  4. DIGOXIN [Concomitant]
     Dosage: UNK, UNKNOWN
     Route: 065
  5. VENTOLIN [Concomitant]
     Dosage: UNK, UNKNOWN
     Route: 065
  6. ATROVENT [Concomitant]
     Dosage: UNK, UNKNOWN
     Route: 065

REACTIONS (1)
  - BRONCHITIS [None]
